FAERS Safety Report 14511319 (Version 1)
Quarter: 2018Q1

REPORT INFORMATION
  Report Type: Spontaneous
  Country: US (occurrence: US)
  Receive Date: 20180208
  Receipt Date: 20180208
  Transmission Date: 20180509
  Serious: No
  Sender: FDA-Public Use
  Company Number: None

PATIENT
  Age: 31 Year
  Sex: Female
  Weight: 103.42 kg

DRUGS (1)
  1. SUBOXONE [Suspect]
     Active Substance: BUPRENORPHINE HYDROCHLORIDE\NALOXONE HYDROCHLORIDE
     Indication: DRUG USE DISORDER
     Dosage: 2 FILMS ONCE DAILY, MOUTH
     Route: 048
     Dates: start: 20171214

REACTIONS (2)
  - Peripheral swelling [None]
  - Joint swelling [None]

NARRATIVE: CASE EVENT DATE: 20180101
